FAERS Safety Report 11521267 (Version 1)
Quarter: 2015Q3

REPORT INFORMATION
  Report Type: Spontaneous
  Country: US (occurrence: None)
  Receive Date: 20150917
  Receipt Date: 20150917
  Transmission Date: 20151125
  Serious: Yes (Death)
  Sender: FDA-Public Use
  Company Number: None

PATIENT
  Age: 79 Year
  Sex: Male

DRUGS (2)
  1. JADENU [Suspect]
     Active Substance: DEFERASIROX
     Indication: DEFICIENCY ANAEMIA
     Dosage: 90MG  1 TAB QD ORAL
     Route: 048
     Dates: start: 20150812, end: 20150914
  2. JADENU [Suspect]
     Active Substance: DEFERASIROX
     Indication: MYELODYSPLASTIC SYNDROME
     Dosage: 90MG  1 TAB QD ORAL
     Route: 048
     Dates: start: 20150812, end: 20150914

REACTIONS (1)
  - Death [None]

NARRATIVE: CASE EVENT DATE: 20150914
